FAERS Safety Report 12800691 (Version 9)
Quarter: 2017Q1

REPORT INFORMATION
  Report Type: Spontaneous
  Country: DE (occurrence: DE)
  Receive Date: 20161001
  Receipt Date: 20170213
  Transmission Date: 20170428
  Serious: Yes (Other)
  Sender: FDA-Public Use
  Company Number: DE-SUN PHARMACEUTICAL INDUSTRIES LTD-2016RR-124728

PATIENT
  Sex: Male
  Weight: 75 kg

DRUGS (7)
  1. TAMSULOSIN BASICS 0,4 MG HARTKAPSEL, RETARDIERT [Suspect]
     Active Substance: TAMSULOSIN
     Indication: BENIGN PROSTATIC HYPERPLASIA
     Dosage: 1 DF, IN THE MORNING
     Route: 048
     Dates: start: 20160625, end: 20160915
  2. TORASEMID [Concomitant]
     Active Substance: TORSEMIDE
     Indication: PRODUCT USED FOR UNKNOWN INDICATION
     Dosage: 10 MG, DAILY - 1 TABLET
     Route: 065
  3. KALINOR (POTASSIUM) [Concomitant]
     Indication: PRODUCT USED FOR UNKNOWN INDICATION
     Dosage: 1 DF, DAILY
     Route: 065
  4. AMLODIPINE [Concomitant]
     Active Substance: AMLODIPINE BESYLATE
     Indication: PRODUCT USED FOR UNKNOWN INDICATION
     Dosage: 1 DF, DAILY
     Route: 065
  5. MARCUMAR [Concomitant]
     Active Substance: PHENPROCOUMON
     Indication: PRODUCT USED FOR UNKNOWN INDICATION
     Dosage: 10 MG, DAILY
     Route: 065
  6. TAMSULOSIN BASICS 0,4 MG HARTKAPSEL, RETARDIERT [Suspect]
     Active Substance: TAMSULOSIN
     Dosage: UNK
     Route: 048
     Dates: start: 20161025, end: 20161026
  7. NEBIVOLOL. [Concomitant]
     Active Substance: NEBIVOLOL
     Indication: PRODUCT USED FOR UNKNOWN INDICATION
     Dosage: 1/2, DAILY
     Route: 065

REACTIONS (9)
  - Myalgia [Not Recovered/Not Resolved]
  - Arthralgia [Not Recovered/Not Resolved]
  - Gait disturbance [Recovering/Resolving]
  - Polyneuropathy [Unknown]
  - Arthralgia [Recovering/Resolving]
  - Haematuria [Recovering/Resolving]
  - Asthenia [Not Recovered/Not Resolved]
  - Muscular weakness [Not Recovered/Not Resolved]
  - Joint swelling [Not Recovered/Not Resolved]

NARRATIVE: CASE EVENT DATE: 2016
